FAERS Safety Report 18335745 (Version 4)
Quarter: 2020Q4

REPORT INFORMATION
  Report Type: Spontaneous
  Country: US (occurrence: US)
  Receive Date: 20201001
  Receipt Date: 20201119
  Transmission Date: 20210113
  Serious: No
  Sender: FDA-Public Use
  Company Number: US-PFIZER INC-2020377448

PATIENT
  Age: 78 Year
  Sex: Male
  Weight: 99.79 kg

DRUGS (2)
  1. ZYVOX [Suspect]
     Active Substance: LINEZOLID
     Indication: STAPHYLOCOCCAL INFECTION
     Dosage: 600 MG, 2X/DAY FOR 10 DAYS
     Route: 048
  2. ZYVOX [Suspect]
     Active Substance: LINEZOLID
     Indication: CELLULITIS
     Dosage: 600 MG, 2X/DAY (TWO TIMES A DAY BY MOUTH FOR 10 DAYS, MORNING AND NIGHT)
     Route: 048
     Dates: start: 20200801

REACTIONS (2)
  - Drug ineffective [Unknown]
  - Limb injury [Unknown]

NARRATIVE: CASE EVENT DATE: 2020
